FAERS Safety Report 6174600-5 (Version None)
Quarter: 2009Q2

REPORT INFORMATION
  Report Type: 
  Country: None (occurrence: None)
  Receive Date: 20090430
  Receipt Date: 20080812
  Transmission Date: 20091009
  Serious: No
  Sender: FDA-Public Use
  Company Number: US-ASTRAZENECA-2008UW16467

PATIENT
  Age: 51 Year
  Sex: Female
  Weight: 74.8 kg

DRUGS (1)
  1. NEXIUM [Suspect]
     Indication: GASTROOESOPHAGEAL REFLUX DISEASE
     Route: 048
     Dates: start: 20080701

REACTIONS (6)
  - CONSTIPATION [None]
  - DIZZINESS [None]
  - DRY MOUTH [None]
  - ERUCTATION [None]
  - HEADACHE [None]
  - NAUSEA [None]
